FAERS Safety Report 21989429 (Version 13)
Quarter: 2023Q2

REPORT INFORMATION
  Report Type: Report from Study
  Country: CN (occurrence: None)
  Receive Date: 20230214
  Receipt Date: 20230626
  Transmission Date: 20230722
  Serious: Yes (Hospitalization)
  Sender: FDA-Public Use
  Company Number: CN-Eisai Medical Research-EC-2023-133956

PATIENT
  Age: 68 Year
  Sex: Female
  Weight: 45 kg

DRUGS (17)
  1. LENVATINIB [Suspect]
     Active Substance: LENVATINIB
     Indication: Oesophageal cancer metastatic
     Dosage: STARTING DOSE AT 8 MG, FLUCTUATED DOSE
     Route: 048
     Dates: start: 20220922, end: 20230204
  2. LENVATINIB [Suspect]
     Active Substance: LENVATINIB
     Route: 048
     Dates: start: 20230205, end: 20230205
  3. PEMBROLIZUMAB [Suspect]
     Active Substance: PEMBROLIZUMAB
     Indication: Oesophageal cancer metastatic
     Route: 041
     Dates: start: 20220922, end: 20230112
  4. PEMBROLIZUMAB [Suspect]
     Active Substance: PEMBROLIZUMAB
     Route: 041
     Dates: start: 20230331
  5. CISPLATIN [Suspect]
     Active Substance: CISPLATIN
     Indication: Oesophageal cancer metastatic
     Route: 041
     Dates: start: 20220922, end: 20230112
  6. CISPLATIN [Suspect]
     Active Substance: CISPLATIN
     Route: 041
     Dates: start: 20230311
  7. FLUOROURACIL [Suspect]
     Active Substance: FLUOROURACIL
     Indication: Oesophageal cancer metastatic
     Route: 041
     Dates: start: 20220922, end: 20230116
  8. FLUOROURACIL [Suspect]
     Active Substance: FLUOROURACIL
     Route: 041
     Dates: start: 20230311, end: 20230315
  9. LEVOTHYROXINE SODIUM [Concomitant]
     Active Substance: LEVOTHYROXINE SODIUM
     Dates: start: 20221114, end: 20230202
  10. LANSOPRAZOLE [Concomitant]
     Active Substance: LANSOPRAZOLE
     Dates: start: 20230111, end: 20230117
  11. FOSAPREPITANT DIMEGLUMINE [Concomitant]
     Active Substance: FOSAPREPITANT DIMEGLUMINE
     Dates: start: 20230112, end: 20230112
  12. ONDANSETRON HYDROCHLORIDE [Concomitant]
     Active Substance: ONDANSETRON HYDROCHLORIDE
     Dates: start: 20230112, end: 20230117
  13. DEXAMETHASONE SODIUM PHOSPHATE [Concomitant]
     Active Substance: DEXAMETHASONE SODIUM PHOSPHATE
     Dates: start: 20230112, end: 20230117
  14. MIRTAZAPINE [Concomitant]
     Active Substance: MIRTAZAPINE
     Dates: start: 20230113, end: 20230117
  15. MORPHINE HYDROCHLORIDE [Concomitant]
     Active Substance: MORPHINE HYDROCHLORIDE
     Dates: start: 20230114, end: 20230114
  16. PEGYLATED RECOMBINANT HUMAN GRANULOCYTE COLONY-STIMULATING FACTOR [Concomitant]
     Dates: start: 20230117, end: 20230117
  17. AMERICAN COCKROACH [Concomitant]
     Active Substance: PERIPLANETA AMERICANA
     Dates: start: 20230121

REACTIONS (1)
  - Venous thrombosis limb [Recovering/Resolving]

NARRATIVE: CASE EVENT DATE: 20230125
